FAERS Safety Report 8320482-2 (Version None)
Quarter: 2012Q2

REPORT INFORMATION
  Report Type: 
  Country: None (occurrence: None)
  Receive Date: 20120427
  Receipt Date: 20120427
  Transmission Date: 20120825
  Serious: Yes (Life-Threatening, Hospitalization)
  Sender: FDA-Public Use
  Company Number: None

PATIENT
  Age: 22 Year
  Sex: Female
  Weight: 49.895 kg

DRUGS (2)
  1. EXCEDRIN (MIGRAINE) [Suspect]
     Indication: MIGRAINE
     Dosage: 2 CAPLETS W/GLASS OF WATER
     Route: 048
     Dates: start: 20120422, end: 20120422
  2. EXCEDRIN (MIGRAINE) [Concomitant]

REACTIONS (5)
  - URTICARIA [None]
  - PRURITUS GENERALISED [None]
  - PALPITATIONS [None]
  - LOSS OF CONSCIOUSNESS [None]
  - VISION BLURRED [None]
